FAERS Safety Report 8373949-5 (Version None)
Quarter: 2012Q2

REPORT INFORMATION
  Report Type: 
  Country: None (occurrence: None)
  Receive Date: 20120521
  Receipt Date: 20120517
  Transmission Date: 20120825
  Serious: No
  Sender: FDA-Public Use
  Company Number: US-BAYER-2012-049568

PATIENT
  Age: 81 Year
  Sex: Female

DRUGS (5)
  1. ACIDOPHILUS [Concomitant]
  2. MULTI-VITAMIN [Concomitant]
  3. AVELOX [Suspect]
     Indication: BRONCHITIS
     Dosage: 400 MG, QD
     Route: 048
     Dates: start: 20120512
  4. THYROID [Concomitant]
  5. LORAZEPAM [Concomitant]

REACTIONS (3)
  - DIARRHOEA [None]
  - FEELING HOT [None]
  - NAUSEA [None]
